FAERS Safety Report 17656039 (Version 1)
Quarter: 2020Q2

REPORT INFORMATION
  Report Type: Spontaneous
  Country: US (occurrence: US)
  Receive Date: 20200409
  Receipt Date: 20200409
  Transmission Date: 20200713
  Serious: Yes (Hospitalization)
  Sender: FDA-Public Use
  Company Number: None

PATIENT
  Age: 23 Year
  Sex: Female

DRUGS (6)
  1. ACTEMRA [Suspect]
     Active Substance: TOCILIZUMAB
     Indication: RHEUMATOID ARTHRITIS
     Dosage: FREQUENCY: EVERY 7 DAYS
     Route: 058
     Dates: start: 20190123
  2. MAGNESIUM [Concomitant]
     Active Substance: MAGNESIUM
  3. CELEBREX [Concomitant]
     Active Substance: CELECOXIB
  4. RIBOFLAVIN [Concomitant]
     Active Substance: RIBOFLAVIN
  5. JUNEL [Concomitant]
     Active Substance: ETHINYL ESTRADIOL\NORETHINDRONE ACETATE
  6. MIRALAX [Concomitant]
     Active Substance: POLYETHYLENE GLYCOL 3350

REACTIONS (2)
  - Temporomandibular joint syndrome [None]
  - Joint arthroplasty [None]

NARRATIVE: CASE EVENT DATE: 20200228
